FAERS Safety Report 7953877-7 (Version None)
Quarter: 2011Q4

REPORT INFORMATION
  Report Type: 
  Country: None (occurrence: None)
  Receive Date: 20111202
  Receipt Date: 20111125
  Transmission Date: 20120403
  Serious: Yes (Disabling)
  Sender: FDA-Public Use
  Company Number: FR-B.I. PHARMACEUTICALS,INC./RIDGEFIELD-2011-FF-01093FF

PATIENT
  Sex: Male

DRUGS (3)
  1. MICARDIS [Suspect]
     Indication: ESSENTIAL HYPERTENSION
     Route: 048
     Dates: start: 19980101, end: 20110628
  2. ASPIRIN [Concomitant]
     Indication: TRANSIENT ISCHAEMIC ATTACK
     Route: 048
  3. NEBIVOLOL HCL [Suspect]
     Indication: ESSENTIAL HYPERTENSION
     Route: 048
     Dates: start: 20091124, end: 20110628

REACTIONS (9)
  - TONGUE DISORDER [None]
  - MUSCULAR WEAKNESS [None]
  - DYSARTHRIA [None]
  - TONGUE PARALYSIS [None]
  - DYSPHONIA [None]
  - DYSPHAGIA [None]
  - DRY MOUTH [None]
  - EYELID PTOSIS [None]
  - PARESIS [None]
